FAERS Safety Report 9257626 (Version 1)
Quarter: 2013Q1

REPORT INFORMATION
  Report Type: Spontaneous
  Country: US (occurrence: None)
  Receive Date: 20121212
  Receipt Date: 20121212
  Transmission Date: 20140127
  Serious: No
  Sender: FDA-Public Use
  Company Number: 1208USA006668

PATIENT
  Age: 63 Year
  Sex: Male
  Weight: 66.9 kg

DRUGS (3)
  1. PEGINTRON [Suspect]
     Indication: HEPATITIS C
     Route: 058
     Dates: start: 20120626
  2. VICTRELIS [Suspect]
     Route: 048
     Dates: start: 20120813
  3. RIBASPHERE [Suspect]
     Route: 048

REACTIONS (4)
  - Anger [None]
  - Anxiety [None]
  - Myalgia [None]
  - Insomnia [None]
